FAERS Safety Report 5366803-4 (Version None)
Quarter: 2007Q2

REPORT INFORMATION
  Report Type: 
  Country: None (occurrence: None)
  Receive Date: 20070622
  Receipt Date: 20060802
  Transmission Date: 20071010
  Serious: No
  Sender: FDA-Public Use
  Company Number: A0614678A

PATIENT
  Sex: Female

DRUGS (2)
  1. ZYBAN [Suspect]
     Indication: DRUG USE FOR UNKNOWN INDICATION
     Dosage: 150MG UNKNOWN
     Route: 048
  2. UNKNOWN [Concomitant]

REACTIONS (1)
  - RASH [None]
